FAERS Safety Report 9156591 (Version 1)
Quarter: 2013Q1

REPORT INFORMATION
  Report Type: Spontaneous
  Country: US (occurrence: None)
  Receive Date: 20130222
  Receipt Date: 20130222
  Transmission Date: 20140127
  Serious: Yes (Hospitalization)
  Sender: FDA-Public Use
  Company Number: VAL_01409_2013

PATIENT
  Age: 31 Year
  Sex: Male

DRUGS (7)
  1. EQUETRO [Suspect]
     Indication: PRODUCT USED FOR UNKNOWN INDICATION
     Dosage: [100 MG ADDED UNTIL 300 MG DOSE (FREQUENCY UNKNOWN) REACHED])
     Dates: start: 2013
  2. DEPAKOTE [Suspect]
     Indication: PRODUCT USED FOR UNKNOWN INDICATION
     Dosage: [CROSS TAPERED FROM A DOSE OF 2000 MG TO 250 MG, FREQUENCY UNKNOWN])
  3. INVEGA SUSTENNA (UNKNOWN) [Concomitant]
  4. SEROQUEL(UNKNOWN) [Concomitant]
  5. VIBRYD (UNKNOWN) [Concomitant]
  6. CHANTIX (UNKNOWN) [Concomitant]
  7. AMBIEN (UNKNOWN) [Concomitant]

REACTIONS (1)
  - Rash generalised [None]
